FAERS Safety Report 15777975 (Version 2)
Quarter: 2019Q1

REPORT INFORMATION
  Report Type: Report from Study
  Country: GB (occurrence: GB)
  Receive Date: 20181231
  Receipt Date: 20190104
  Transmission Date: 20190417
  Serious: Yes (Other)
  Sender: FDA-Public Use
  Company Number: PHHY2018GB197724

PATIENT
  Sex: Female

DRUGS (2)
  1. COSENTYX [Suspect]
     Active Substance: SECUKINUMAB
     Indication: PSORIATIC ARTHROPATHY
     Dosage: 300 MG, QW (LOADING DOSES)
     Route: 058
     Dates: start: 20181213
  2. COSENTYX [Suspect]
     Active Substance: SECUKINUMAB
     Dosage: 300 MG, QW (LOADING DOSES)
     Route: 058
     Dates: start: 20181221

REACTIONS (8)
  - Abdominal discomfort [Not Recovered/Not Resolved]
  - Hot flush [Not Recovered/Not Resolved]
  - Nausea [Not Recovered/Not Resolved]
  - Pruritus [Unknown]
  - Influenza like illness [Not Recovered/Not Resolved]
  - Vomiting [Unknown]
  - Rash generalised [Unknown]
  - Diarrhoea [Unknown]
